FAERS Safety Report 8264777-X (Version None)
Quarter: 2012Q2

REPORT INFORMATION
  Report Type: 
  Country: None (occurrence: None)
  Receive Date: 20120404
  Receipt Date: 20120323
  Transmission Date: 20120825
  Serious: Yes (Hospitalization)
  Sender: FDA-Public Use
  Company Number: 2012-001045

PATIENT
  Age: 95 Year
  Sex: Male

DRUGS (1)
  1. ENABLEX [Suspect]
     Dosage: 15 MG, ORAL
     Route: 048

REACTIONS (3)
  - MYALGIA [None]
  - ARTHRALGIA [None]
  - CEREBROVASCULAR ACCIDENT [None]
